FAERS Safety Report 5909671-1 (Version None)
Quarter: 2008Q4

REPORT INFORMATION
  Report Type: 
  Country: None (occurrence: None)
  Receive Date: 20081007
  Receipt Date: 20080929
  Transmission Date: 20090506
  Serious: Yes (Other)
  Sender: FDA-Public Use
  Company Number: PHHY2008GB23276

PATIENT
  Sex: Male

DRUGS (1)
  1. EXELON [Suspect]
     Indication: DEMENTIA
     Dosage: 4.6 MG/24 HRS
     Route: 062

REACTIONS (3)
  - ALTERED STATE OF CONSCIOUSNESS [None]
  - HYPERVIGILANCE [None]
  - MOOD ALTERED [None]
